FAERS Safety Report 9150109 (Version 5)
Quarter: 2014Q2

REPORT INFORMATION
  Report Type: Spontaneous
  Country: US (occurrence: None)
  Receive Date: 20130201
  Receipt Date: 20140522
  Transmission Date: 20141212
  Serious: Yes (Hospitalization, Other)
  Sender: FDA-Public Use
  Company Number: 2013SGN00030

PATIENT
  Age: 38 Year
  Sex: Male
  Weight: 94.1 kg

DRUGS (6)
  1. ADCETRIS [Suspect]
     Indication: HODGKIN^S DISEASE
     Dosage: Q21D
     Route: 042
     Dates: start: 20121204, end: 20121204
  2. METOPROLOL (METOPROLOL TARTRATE) [Concomitant]
  3. AMITRIPTYLINE (AMITRIPTYLINE PAMOATE) [Concomitant]
  4. AMBIEN (ZOLPIDEM TARTRATE) [Concomitant]
  5. BACTRIM [Concomitant]
  6. VALTREX (VALACICLOVIR HYDROCHLORIDE) [Concomitant]

REACTIONS (6)
  - Pancreatitis [None]
  - Blood glucose increased [None]
  - Diabetes mellitus [None]
  - Hepatic steatosis [None]
  - Malignant neoplasm progression [None]
  - Hodgkin^s disease [None]
